FAERS Safety Report 10387419 (Version 2)
Quarter: 2015Q2

REPORT INFORMATION
  Report Type: Spontaneous
  Country: FR (occurrence: FR)
  Receive Date: 20140815
  Receipt Date: 20150521
  Transmission Date: 20150821
  Serious: Yes (Congenital Anomaly)
  Sender: FDA-Public Use
  Company Number: FR-ELI_LILLY_AND_COMPANY-FR201408000861

PATIENT
  Age: 0 Day

DRUGS (1)
  1. ZYPREXA [Suspect]
     Active Substance: OLANZAPINE
     Indication: SCHIZOPHRENIA
     Dosage: 10 MG, QD
     Route: 064

REACTIONS (6)
  - Syndactyly [Recovered/Resolved with Sequelae]
  - Agitation [Unknown]
  - Amniotic band syndrome [Recovered/Resolved with Sequelae]
  - Speech disorder [Unknown]
  - Foetal exposure during pregnancy [Unknown]
  - Syndactyly [Recovered/Resolved]

NARRATIVE: CASE EVENT DATE: 20130306
